FAERS Safety Report 6511795-5 (Version None)
Quarter: 2009Q4

REPORT INFORMATION
  Report Type: 
  Country: None (occurrence: None)
  Receive Date: 20091222
  Receipt Date: 20090409
  Transmission Date: 20100525
  Serious: No
  Sender: FDA-Public Use
  Company Number: US-ASTRAZENECA-2009UW08980

PATIENT
  Age: 46 Year
  Sex: Female
  Weight: 59 kg

DRUGS (4)
  1. CRESTOR [Suspect]
     Route: 048
     Dates: start: 20090101
  2. SYNTHROID [Concomitant]
  3. ASPIRIN [Concomitant]
  4. XANAX [Concomitant]

REACTIONS (1)
  - MIGRAINE [None]
